FAERS Safety Report 23151064 (Version 1)
Quarter: 2023Q4

REPORT INFORMATION
  Report Type: Spontaneous
  Country: PT (occurrence: PT)
  Receive Date: 20231106
  Receipt Date: 20231106
  Transmission Date: 20240110
  Serious: Yes (Death)
  Sender: FDA-Public Use
  Company Number: PT-009507513-2310PRT011270

PATIENT
  Sex: Female

DRUGS (2)
  1. DORAVIRINE [Suspect]
     Active Substance: DORAVIRINE
     Route: 048
  2. DORAVIRINE [Suspect]
     Active Substance: DORAVIRINE
     Route: 048

REACTIONS (1)
  - Illness [Fatal]
